FAERS Safety Report 16500027 (Version 2)
Quarter: 2019Q3

REPORT INFORMATION
  Report Type: Spontaneous
  Country: ES (occurrence: ES)
  Receive Date: 20190701
  Receipt Date: 20190702
  Transmission Date: 20191004
  Serious: Yes (Congenital Anomaly)
  Sender: FDA-Public Use
  Company Number: PHHY2019ES147294

PATIENT

DRUGS (1)
  1. LEVETIRACETAM. [Suspect]
     Active Substance: LEVETIRACETAM
     Indication: FOETAL EXPOSURE DURING PREGNANCY
     Dosage: MATERNAL DOSE: 1000 MG, QD MONOTHERAPY
     Route: 064

REACTIONS (2)
  - Trisomy 21 [Not Recovered/Not Resolved]
  - Maternal exposure during pregnancy [Unknown]
